FAERS Safety Report 9355486 (Version 1)
Quarter: 2013Q2

REPORT INFORMATION
  Report Type: Spontaneous
  Country: US (occurrence: US)
  Receive Date: 20130619
  Receipt Date: 20130619
  Transmission Date: 20140414
  Serious: Yes (Death)
  Sender: FDA-Public Use
  Company Number: US-PFIZER INC-2013180506

PATIENT
  Age: 60 Year
  Sex: Male

DRUGS (2)
  1. TORISEL [Suspect]
     Indication: RENAL CANCER
     Dosage: 25 MG, UNK
     Dates: start: 20130422
  2. TORISEL [Suspect]
     Indication: MALIGNANT URINARY TRACT NEOPLASM

REACTIONS (1)
  - Death [Fatal]
